FAERS Safety Report 8322655-1 (Version None)
Quarter: 2012Q2

REPORT INFORMATION
  Report Type: 
  Country: None (occurrence: None)
  Receive Date: 20120430
  Receipt Date: 20120418
  Transmission Date: 20120825
  Serious: Yes (Hospitalization)
  Sender: FDA-Public Use
  Company Number: JP-MERCK-1202USA01773

PATIENT
  Age: 64 Year
  Sex: Male
  Weight: 52 kg

DRUGS (6)
  1. SUCRALFATE [Concomitant]
     Route: 048
     Dates: end: 20120209
  2. BIO THREE [Concomitant]
     Route: 048
     Dates: end: 20120229
  3. RABEPRAZOLE SODIUM [Concomitant]
     Route: 048
     Dates: end: 20120209
  4. FOIPAN [Concomitant]
     Route: 048
     Dates: end: 20120209
  5. JANUVIA [Suspect]
     Indication: TYPE 2 DIABETES MELLITUS
     Route: 048
     Dates: start: 20110101, end: 20120207
  6. BERIZYM (ASPERGILLUS ORYZAE EXTRACT (+) CELLULASE (+) LIPASE (+) PANCR [Concomitant]
     Route: 048
     Dates: end: 20120209

REACTIONS (5)
  - GLYCOSYLATED HAEMOGLOBIN INCREASED [None]
  - PANCREATIC ENZYMES INCREASED [None]
  - BLOOD ELASTASE INCREASED [None]
  - ABDOMINAL PAIN UPPER [None]
  - LIPASE INCREASED [None]
